FAERS Safety Report 3997756 (Version 4)
Quarter: 2020Q3

REPORT INFORMATION
  Report Type: Report from Study
  Country: US (occurrence: US)
  Receive Date: 20030826
  Receipt Date: 20200414
  Transmission Date: 20201104
  Serious: Yes (Life-Threatening)
  Sender: FDA-Public Use
  Company Number: US-JNJFOC-20030804542

PATIENT
  Age: 85 Year
  Sex: Female
  Weight: 55.84 kg

DRUGS (20)
  1. ASA [Concomitant]
     Active Substance: ASPIRIN
     Route: 048
  2. DUONEB [Concomitant]
     Active Substance: ALBUTEROL SULFATE\IPRATROPIUM BROMIDE
  3. LACTULOSE. [Concomitant]
     Active Substance: LACTULOSE
     Route: 048
  4. HYCODAN [Concomitant]
     Active Substance: HOMATROPINE METHYLBROMIDE\HYDROCODONE BITARTRATE
     Route: 048
  5. AVELOX [Concomitant]
     Active Substance: MOXIFLOXACIN HYDROCHLORIDE
     Route: 048
  6. PLAVIX [Concomitant]
     Active Substance: CLOPIDOGREL BISULFATE
     Route: 048
  7. ZETIA [Concomitant]
     Active Substance: EZETIMIBE
     Route: 048
  8. PREDNISONE. [Concomitant]
     Active Substance: PREDNISONE
     Route: 048
  9. HYDROCHLOROTHIAZIDE. [Concomitant]
     Active Substance: HYDROCHLOROTHIAZIDE
     Route: 048
  10. NITRO PATCH [Concomitant]
     Active Substance: NITROGLYCERIN
     Route: 061
  11. POTASSIUM CHLORIDE. [Concomitant]
     Active Substance: POTASSIUM CHLORIDE
     Route: 048
  12. ADVAIR DISKUS [Concomitant]
     Active Substance: FLUTICASONE PROPIONATE\SALMETEROL XINAFOATE
  13. MUCINEX [Concomitant]
     Active Substance: GUAIFENESIN
     Route: 048
  14. NORVASC [Concomitant]
     Active Substance: AMLODIPINE BESYLATE
     Route: 048
  15. PREVACID [Concomitant]
     Active Substance: LANSOPRAZOLE
     Route: 048
  16. DETROL LA [Concomitant]
     Active Substance: TOLTERODINE TARTRATE
     Route: 048
  17. CISAPRIDE [Suspect]
     Active Substance: CISAPRIDE
     Indication: GASTROOESOPHAGEAL REFLUX DISEASE
     Route: 048
     Dates: start: 20010103, end: 20030808
  18. COREG [Concomitant]
     Active Substance: CARVEDILOL
     Route: 048
  19. CATAPRES?TTS [Concomitant]
     Active Substance: CLONIDINE
     Route: 061
  20. FLONASE [Concomitant]
     Active Substance: FLUTICASONE PROPIONATE
     Route: 065

REACTIONS (1)
  - Electrocardiogram QT prolonged [Recovered/Resolved]

NARRATIVE: CASE EVENT DATE: 20030716
